FAERS Safety Report 21978319 (Version 3)
Quarter: 2023Q2

REPORT INFORMATION
  Report Type: Report from Study
  Country: CN (occurrence: CN)
  Receive Date: 20230210
  Receipt Date: 20230515
  Transmission Date: 20230722
  Serious: Yes (Life-Threatening)
  Sender: FDA-Public Use
  Company Number: CN-DSRSG-DS8201AU305_23125010_000002

PATIENT
  Age: 54 Year
  Sex: Female
  Weight: 69.5 kg

DRUGS (28)
  1. FAM-TRASTUZUMAB DERUXTECAN-NXKI [Suspect]
     Active Substance: FAM-TRASTUZUMAB DERUXTECAN-NXKI
     Indication: HER2 positive breast cancer
     Dosage: 5.4 MG/KG (ACTUAL TOTAL DOSE ADMINISTERED: 375.3)
     Route: 042
     Dates: start: 20220913, end: 20220913
  2. FAM-TRASTUZUMAB DERUXTECAN-NXKI [Suspect]
     Active Substance: FAM-TRASTUZUMAB DERUXTECAN-NXKI
     Dosage: 5.4 MG/KG (ACTUAL TOTAL DOSE ADMINISTERED: 375.3)
     Route: 042
     Dates: start: 20221007, end: 20221007
  3. FAM-TRASTUZUMAB DERUXTECAN-NXKI [Suspect]
     Active Substance: FAM-TRASTUZUMAB DERUXTECAN-NXKI
     Dosage: 5.4 MG/KG (ACTUAL TOTAL DOSE ADMINISTERED: 375.3)
     Route: 042
     Dates: start: 20221028, end: 20221028
  4. FAM-TRASTUZUMAB DERUXTECAN-NXKI [Suspect]
     Active Substance: FAM-TRASTUZUMAB DERUXTECAN-NXKI
     Dosage: 5.4 MG/KG (ACTUAL TOTAL DOSE ADMINISTERED: 375.3)
     Route: 042
     Dates: start: 20221118, end: 20221118
  5. FAM-TRASTUZUMAB DERUXTECAN-NXKI [Suspect]
     Active Substance: FAM-TRASTUZUMAB DERUXTECAN-NXKI
     Dosage: 5.4 MG/KG (ACTUAL TOTAL DOSE ADMINISTERED: 375.3)
     Route: 042
     Dates: start: 20221209, end: 20221209
  6. FAM-TRASTUZUMAB DERUXTECAN-NXKI [Suspect]
     Active Substance: FAM-TRASTUZUMAB DERUXTECAN-NXKI
     Dosage: 4.4 MG/KG (ACTUAL TOTAL DOSE ADMINISTERED: 305.8)
     Route: 042
     Dates: start: 20230112, end: 20230112
  7. FAM-TRASTUZUMAB DERUXTECAN-NXKI [Suspect]
     Active Substance: FAM-TRASTUZUMAB DERUXTECAN-NXKI
     Dosage: 3.2 MG/KG (ACTUAL TOTAL DOSE ADMINISTERED: 222.4)
     Route: 042
     Dates: start: 20230223, end: 20230223
  8. FAM-TRASTUZUMAB DERUXTECAN-NXKI [Suspect]
     Active Substance: FAM-TRASTUZUMAB DERUXTECAN-NXKI
     Dosage: 3.2 MG/KG (ACTUAL TOTAL DOSE ADMINISTERED: 222.4)
     Route: 042
     Dates: start: 20230407, end: 20230407
  9. FAM-TRASTUZUMAB DERUXTECAN-NXKI [Suspect]
     Active Substance: FAM-TRASTUZUMAB DERUXTECAN-NXKI
     Dosage: 3.2 MG/KG (ACTUAL TOTAL DOSE ADMINISTERED: 222.4)
     Route: 042
     Dates: start: 20230428, end: 20230428
  10. CEFUROXIME SODIUM [Concomitant]
     Active Substance: CEFUROXIME SODIUM
     Indication: Pyrexia
     Dosage: 1.5 G, ONCE
     Route: 042
     Dates: start: 20221208, end: 20221208
  11. CALCIUM CARBONATE\CHOLECALCIFEROL [Concomitant]
     Active Substance: CALCIUM CARBONATE\CHOLECALCIFEROL
     Indication: Prophylaxis
     Dosage: 1 TABLET, DAILY (QD)
     Route: 048
     Dates: start: 20220412
  12. EXEMESTANE [Concomitant]
     Active Substance: EXEMESTANE
     Indication: Endocrine disorder
     Dosage: 25 MG, QD
     Route: 048
     Dates: start: 20220412
  13. GOSERELIN ACETATE [Concomitant]
     Active Substance: GOSERELIN ACETATE
     Indication: Androgen therapy
     Dosage: 3.6 MG, ONCE EVERY 4 WK
     Route: 058
     Dates: start: 20220907
  14. GRANULOCYTE COLONY-STIMULATING FACTOR NOS [Concomitant]
     Active Substance: GRANULOCYTE COLONY-STIMULATING FACTOR NOS
     Indication: Neutrophil count decreased
     Dosage: 100 UG, ONCE
     Route: 058
     Dates: start: 20221208, end: 20221208
  15. OMEPRAZOLE SODIUM [Concomitant]
     Active Substance: OMEPRAZOLE SODIUM
     Indication: Prophylaxis
     Dosage: 60 MG, ONCE
     Route: 042
     Dates: start: 20221209, end: 20221209
  16. PALONOSETRON HYDROCHLORIDE [Concomitant]
     Active Substance: PALONOSETRON HYDROCHLORIDE
     Indication: Prophylaxis
     Dosage: 0.25 MG, ONCE
     Route: 042
     Dates: start: 20221209, end: 20221209
  17. FERRIC POLYSACCHARIDE COMPLEX [Concomitant]
     Active Substance: FERRIC POLYSACCHARIDE COMPLEX
     Indication: Anaemia
     Dosage: 0.15 G, QD
     Route: 048
     Dates: start: 20221216, end: 20230222
  18. LEUCOGEN [Concomitant]
     Active Substance: LEUCOGEN
     Indication: Platelet count decreased
     Dosage: 1 TABLET THREE TIMES PER DAY (TID)
     Route: 048
     Dates: start: 20221216, end: 20230112
  19. THROMBOPOIETIN [Concomitant]
     Active Substance: THROMBOPOIETIN
     Indication: Platelet count decreased
     Dosage: 15000 OTHER ST
     Route: 058
     Dates: start: 20221216, end: 20221216
  20. THROMBOPOIETIN [Concomitant]
     Active Substance: THROMBOPOIETIN
     Dosage: 15000 OTHER
     Route: 058
     Dates: start: 20221217, end: 20230103
  21. GRANULOCYTE COLONY-STIMULATING FACTOR NOS [Concomitant]
     Active Substance: GRANULOCYTE COLONY-STIMULATING FACTOR NOS
     Indication: Prophylaxis
     Dosage: 100 MICROGRAMME OTHER ST
     Route: 058
     Dates: start: 20221216, end: 20221216
  22. GRANULOCYTE COLONY-STIMULATING FACTOR NOS [Concomitant]
     Active Substance: GRANULOCYTE COLONY-STIMULATING FACTOR NOS
     Dosage: 200 OTHER
     Route: 058
     Dates: start: 20221219, end: 20221223
  23. SHENG XUE BAO [Concomitant]
     Indication: Anaemia
     Dosage: 15 ML, TID
     Route: 048
     Dates: start: 20221216, end: 20230222
  24. PROMETHAZINE HYDROCHLORIDE [Concomitant]
     Active Substance: PROMETHAZINE HYDROCHLORIDE
     Indication: Prophylaxis
     Dosage: 25 MILLIGRAM OTHER ST
     Route: 030
     Dates: start: 20221217, end: 20221217
  25. COMPOUND AMIONPRINE AND ANTIPYRINE [Concomitant]
     Indication: Pyrexia
     Dosage: 2 ML OTHER ST
     Route: 030
     Dates: start: 20221218, end: 20221218
  26. COMPOUND SODIUM CHLORIDE [CALCIUM CHLORIDE;POTASSIUM CHLORIDE;SODIUM C [Concomitant]
     Indication: Infusion
     Dosage: 500 ML, ONCE
     Route: 042
     Dates: start: 20221219, end: 20221219
  27. IMIPENEM AND CILASTATIN SODIUM [Concomitant]
     Active Substance: CILASTATIN SODIUM\IMIPENEM
     Indication: Pyrexia
     Dosage: 0.5 G, ONCE EVERY 8HR
     Route: 042
     Dates: start: 20221219, end: 20221224
  28. INDOMETHACIN [Concomitant]
     Active Substance: INDOMETHACIN
     Indication: Pyrexia
     Dosage: 0.05 GRAM OTHER ST
     Route: 050
     Dates: start: 20221219, end: 20221219

REACTIONS (1)
  - White blood cell count decreased [Recovering/Resolving]

NARRATIVE: CASE EVENT DATE: 20221219
